FAERS Safety Report 24358583 (Version 3)
Quarter: 2025Q1

REPORT INFORMATION
  Report Type: Spontaneous
  Country: AU (occurrence: AU)
  Receive Date: 20240924
  Receipt Date: 20250314
  Transmission Date: 20250408
  Serious: Yes (Life-Threatening)
  Sender: BIOMARIN
  Company Number: AU-BIOMARINAP-AU-2024-160722

PATIENT

DRUGS (1)
  1. VOXZOGO [Suspect]
     Active Substance: VOSORITIDE
     Indication: Osteochondrodysplasia
     Dosage: UNK, QD
     Route: 058
     Dates: start: 202403

REACTIONS (9)
  - Foramen magnum stenosis [Recovered/Resolved]
  - Clonus [Recovering/Resolving]
  - Central sleep apnoea syndrome [Recovered/Resolved]
  - Aspiration [Not Recovered/Not Resolved]
  - Dysphagia [Unknown]
  - Hypotonia [Recovering/Resolving]
  - Otitis media [Unknown]
  - Conductive deafness [Unknown]
  - Kyphosis [Unknown]

NARRATIVE: CASE EVENT DATE: 20240701
